FAERS Safety Report 8222364-3 (Version None)
Quarter: 2012Q1

REPORT INFORMATION
  Report Type: 
  Country: None (occurrence: None)
  Receive Date: 20120320
  Receipt Date: 20120309
  Transmission Date: 20120608
  Serious: No
  Sender: FDA-Public Use
  Company Number: US-BAYER-2012-025724

PATIENT
  Age: 17 Year
  Sex: Female
  Weight: 52.154 kg

DRUGS (1)
  1. YAZ [Suspect]
     Indication: ACNE
     Dosage: UNK
     Dates: start: 20080401, end: 20100111

REACTIONS (8)
  - VOMITING [None]
  - NAUSEA [None]
  - MUSCLE ATROPHY [None]
  - WEIGHT DECREASED [None]
  - HOT FLUSH [None]
  - ASTHENIA [None]
  - ABDOMINAL DISCOMFORT [None]
  - ABDOMINAL PAIN UPPER [None]
